FAERS Safety Report 6644525-7 (Version None)
Quarter: 2010Q1

REPORT INFORMATION
  Report Type: 
  Country: None (occurrence: None)
  Receive Date: 20100322
  Receipt Date: 20100316
  Transmission Date: 20100710
  Serious: Yes (Other)
  Sender: FDA-Public Use
  Company Number: US-SANOFI-AVENTIS-2010SA003372

PATIENT
  Age: 72 Year
  Sex: Male
  Weight: 81.64 kg

DRUGS (4)
  1. LANTUS [Suspect]
     Indication: TYPE 2 DIABETES MELLITUS
     Dosage: DOSE:15 UNIT(S)
     Route: 058
     Dates: start: 20060101
  2. OPTICLICK [Suspect]
     Dates: start: 20080101
  3. NOVOLOG [Concomitant]
     Indication: DIABETES MELLITUS MANAGEMENT
     Dosage: DOSE:5 UNIT(S)
  4. METFORMIN [Concomitant]
     Indication: TYPE 2 DIABETES MELLITUS

REACTIONS (2)
  - BLINDNESS [None]
  - GLAUCOMA [None]
